APPROVED DRUG PRODUCT: AMINOPHYLLINE DYE FREE
Active Ingredient: AMINOPHYLLINE
Strength: 105MG/5ML
Dosage Form/Route: SOLUTION;ORAL
Application: A087727 | Product #001
Applicant: ACTAVIS MID ATLANTIC LLC
Approved: Apr 16, 1982 | RLD: No | RS: No | Type: DISCN